FAERS Safety Report 9956740 (Version 1)
Quarter: 2014Q1

REPORT INFORMATION
  Report Type: Report from Study
  Country: US (occurrence: US)
  Receive Date: 20140304
  Receipt Date: 20140304
  Transmission Date: 20141002
  Serious: No
  Sender: FDA-Public Use
  Company Number: US-ABBVIE-13P-163-1098708-00

PATIENT
  Age: 18 Year
  Sex: Female

DRUGS (4)
  1. HUMIRA [Suspect]
     Indication: COLITIS ULCERATIVE
     Dates: start: 20130513
  2. HUMIRA [Suspect]
     Dates: start: 20130527
  3. PENTASA [Concomitant]
     Indication: COLITIS ULCERATIVE
  4. METHOTREXATE [Concomitant]
     Indication: COLITIS ULCERATIVE
     Dosage: 3 PILLS

REACTIONS (1)
  - Eye pain [Recovering/Resolving]
